FAERS Safety Report 4467785-X (Version None)
Quarter: 2004Q4

REPORT INFORMATION
  Report Type: 
  Country: None (occurrence: None)
  Receive Date: 20041004
  Receipt Date: 20040921
  Transmission Date: 20050328
  Serious: Yes (Hospitalization)
  Sender: FDA-Public Use
  Company Number: 062-20785-04090667

PATIENT
  Age: 78 Year
  Sex: Male

DRUGS (2)
  1. THALIDOMIDE - PHARMION (THALIDOMIDE) (50  MILLIGRAM, CAPSULES) [Suspect]
     Indication: PLASMACYTOMA
     Dosage: 50 MG, DAILY, ORAL; 200 MG, DAILY, ORAL
     Route: 048
     Dates: start: 20040715, end: 20040909
  2. THALIDOMIDE - PHARMION (THALIDOMIDE) (50  MILLIGRAM, CAPSULES) [Suspect]
     Indication: PLASMACYTOMA
     Dosage: 50 MG, DAILY, ORAL; 200 MG, DAILY, ORAL
     Route: 048
     Dates: start: 20040910

REACTIONS (1)
  - FEMORAL NECK FRACTURE [None]
